FAERS Safety Report 16171805 (Version 2)
Quarter: 2019Q2

REPORT INFORMATION
  Report Type: Report from Study
  Country: None (occurrence: US)
  Receive Date: 20190408
  Receipt Date: 20190513
  Transmission Date: 20190711
  Serious: Yes (Other)
  Sender: FDA-Public Use
  Company Number: US-ABBVIE-19K-163-2642889-00

PATIENT
  Age: 59 Year
  Sex: Female

DRUGS (8)
  1. HUMIRA [Suspect]
     Active Substance: ADALIMUMAB
     Indication: PRODUCT USED FOR UNKNOWN INDICATION
     Dosage: HUMIRA CF PEN
     Route: 058
     Dates: start: 2019
  2. CITALOPRAM [Concomitant]
     Active Substance: CITALOPRAM HYDROBROMIDE
     Indication: PRODUCT USED FOR UNKNOWN INDICATION
  3. HUMIRA [Suspect]
     Active Substance: ADALIMUMAB
     Indication: PRODUCT USED FOR UNKNOWN INDICATION
     Route: 058
     Dates: start: 201812
  4. HORSE CHESTNUT [Concomitant]
     Active Substance: HORSE CHESTNUT
     Indication: PRODUCT USED FOR UNKNOWN INDICATION
  5. HUMIRA [Suspect]
     Active Substance: ADALIMUMAB
     Route: 058
     Dates: start: 2019, end: 2019
  6. RANITIDINE HCL [Concomitant]
     Active Substance: RANITIDINE HYDROCHLORIDE
     Indication: PRODUCT USED FOR UNKNOWN INDICATION
  7. METHOTREXATE. [Concomitant]
     Active Substance: METHOTREXATE
     Indication: PRODUCT USED FOR UNKNOWN INDICATION
  8. HUMIRA [Suspect]
     Active Substance: ADALIMUMAB
     Route: 058
     Dates: start: 201902, end: 2019

REACTIONS (14)
  - Product storage error [Unknown]
  - Suicide attempt [Unknown]
  - Product colour issue [Unknown]
  - Fear of injection [Unknown]
  - Ulcer [Unknown]
  - Grip strength decreased [Unknown]
  - Injection site pain [Unknown]
  - Anxiety [Unknown]
  - Finger deformity [Unknown]
  - Depression [Unknown]
  - Pain [Unknown]
  - Hand deformity [Unknown]
  - Injection site urticaria [Recovered/Resolved with Sequelae]
  - Panic attack [Unknown]

NARRATIVE: CASE EVENT DATE: 201812
